FAERS Safety Report 4968669-0 (Version None)
Quarter: 2006Q2

REPORT INFORMATION
  Report Type: 
  Country: None (occurrence: None)
  Receive Date: 20060411
  Receipt Date: 20060331
  Transmission Date: 20061013
  Serious: Yes (Other)
  Sender: FDA-Public Use
  Company Number: 2006UW05896

PATIENT
  Age: 82 Year
  Sex: Female
  Weight: 50 kg

DRUGS (3)
  1. ATACAND HCT [Suspect]
     Route: 048
     Dates: start: 20060316
  2. SILOSTOL [Concomitant]
     Route: 048
     Dates: end: 20060316
  3. TAFLON [Concomitant]
     Route: 048
     Dates: end: 20060316

REACTIONS (2)
  - PALPITATIONS [None]
  - PHLEBITIS [None]
